FAERS Safety Report 7198392-6 (Version None)
Quarter: 2010Q4

REPORT INFORMATION
  Report Type: 
  Country: None (occurrence: None)
  Receive Date: 20101227
  Receipt Date: 20101214
  Transmission Date: 20110411
  Serious: Yes (Hospitalization)
  Sender: FDA-Public Use
  Company Number: PHHY2010MX40560

PATIENT
  Age: 55 Year
  Sex: Female

DRUGS (1)
  1. ACLASTA [Suspect]
     Indication: OSTEOPOROSIS
     Dosage: 5 MG/ 100 ML / YEAR
     Dates: start: 20090613

REACTIONS (6)
  - BIOPSY [None]
  - DIARRHOEA [None]
  - NASAL CAVITY MASS [None]
  - NAUSEA [None]
  - PAIN [None]
  - VOMITING [None]
